FAERS Safety Report 8021922-9 (Version None)
Quarter: 2012Q1

REPORT INFORMATION
  Report Type: 
  Country: None (occurrence: None)
  Receive Date: 20120104
  Receipt Date: 20111229
  Transmission Date: 20120608
  Serious: Yes (Hospitalization)
  Sender: FDA-Public Use
  Company Number: US-BAYER-2011-124510

PATIENT
  Age: 70 Year
  Sex: Female

DRUGS (6)
  1. INSULIN [Concomitant]
  2. HORMONES NOS [Concomitant]
  3. LORAZEPAM [Concomitant]
  4. PREDNISONE TAB [Concomitant]
  5. OXYGEN [Concomitant]
  6. AVELOX [Suspect]
     Indication: DYSPNOEA
     Dosage: 400 MG, ONCE
     Route: 042
     Dates: start: 20110215, end: 20110215

REACTIONS (6)
  - VERTIGO [None]
  - OEDEMA [None]
  - PALPITATIONS [None]
  - NAUSEA [None]
  - FEELING JITTERY [None]
  - SKIN BURNING SENSATION [None]
